FAERS Safety Report 4568296-3 (Version None)
Quarter: 2005Q1

REPORT INFORMATION
  Report Type: 
  Country: None (occurrence: None)
  Receive Date: 20050202
  Receipt Date: 20050106
  Transmission Date: 20050727
  Serious: Yes (Hospitalization)
  Sender: FDA-Public Use
  Company Number: US-GLAXOSMITHKLINE-B0363857A

PATIENT
  Age: 29 Year
  Sex: Male
  Weight: 72.3 kg

DRUGS (6)
  1. SODIUM STIBOGLUCONATE [Suspect]
     Indication: CUTANEOUS LEISHMANIASIS
     Dosage: 1391MG PER DAY
     Route: 042
     Dates: start: 20020809, end: 20020823
  2. ZYBAN [Suspect]
     Indication: SMOKER
  3. KEFLEX [Concomitant]
     Indication: WOUND INFECTION
     Dosage: 500MG THREE TIMES PER DAY
     Route: 048
     Dates: start: 20020814, end: 20020829
  4. FLUCONAZOLE [Concomitant]
     Indication: LEISHMANIASIS
     Dosage: 200MG PER DAY
     Route: 048
     Dates: start: 20020825, end: 20020927
  5. RIFAMPIN [Concomitant]
     Indication: CUTANEOUS LEISHMANIASIS
  6. KETOCONAZOLE [Concomitant]
     Indication: CUTANEOUS LEISHMANIASIS

REACTIONS (16)
  - ARTHRALGIA [None]
  - ASTHENIA [None]
  - BACK PAIN [None]
  - CEREBROVASCULAR ACCIDENT [None]
  - CHEST PAIN [None]
  - DIZZINESS [None]
  - FATIGUE [None]
  - FLANK PAIN [None]
  - HEADACHE [None]
  - LIMB DISCOMFORT [None]
  - MUSCLE SPASMS [None]
  - MYALGIA [None]
  - NAUSEA [None]
  - RENAL FAILURE ACUTE [None]
  - RHABDOMYOLYSIS [None]
  - VOMITING [None]
